FAERS Safety Report 22667245 (Version 3)
Quarter: 2025Q2

REPORT INFORMATION
  Report Type: Spontaneous
  Country: DE (occurrence: DE)
  Receive Date: 20230704
  Receipt Date: 20250612
  Transmission Date: 20250717
  Serious: Yes (Other)
  Sender: AUROBINDO
  Company Number: DE-LESVI-2023002628

PATIENT
  Age: 33 Year
  Sex: Male

DRUGS (14)
  1. AMISULPRIDE [Suspect]
     Active Substance: AMISULPRIDE
     Indication: Schizophrenia
     Route: 065
  2. AMISULPRIDE [Suspect]
     Active Substance: AMISULPRIDE
     Indication: Akathisia
  3. ARIPIPRAZOLE [Suspect]
     Active Substance: ARIPIPRAZOLE
     Indication: Schizophrenia
     Route: 065
  4. BUPRENORPHINE [Suspect]
     Active Substance: BUPRENORPHINE
     Indication: Drug withdrawal syndrome
     Dosage: 32 MILLIGRAM, ONCE A DAY
     Route: 045
     Dates: start: 2014, end: 2017
  5. BUPRENORPHINE [Suspect]
     Active Substance: BUPRENORPHINE
     Dosage: 16 MILLIGRAM, ONCE A DAY
     Route: 045
     Dates: start: 2017
  6. PREGABALIN [Suspect]
     Active Substance: PREGABALIN
     Indication: Drug withdrawal syndrome
     Dosage: 600 MILLIGRAM, ONCE A DAY
     Route: 065
  7. QUETIAPINE [Suspect]
     Active Substance: QUETIAPINE
     Indication: Withdrawal syndrome
     Dosage: 400 MILLIGRAM, ONCE A DAY
     Route: 065
  8. SERTRALINE [Suspect]
     Active Substance: SERTRALINE HYDROCHLORIDE
     Indication: Withdrawal syndrome
     Route: 065
  9. BUPROPION [Suspect]
     Active Substance: BUPROPION
     Indication: Tobacco user
     Dosage: 300 MILLIGRAM, ONCE A DAY
     Route: 065
  10. BUPROPION [Suspect]
     Active Substance: BUPROPION
     Indication: Withdrawal syndrome
  11. CLONIDINE [Suspect]
     Active Substance: CLONIDINE
     Indication: Product used for unknown indication
     Dosage: 0.6 MILLIGRAM, ONCE A DAY
     Route: 065
  12. DEXTROMETHORPHAN [Suspect]
     Active Substance: DEXTROMETHORPHAN
     Indication: Product used for unknown indication
     Dosage: 90 MILLIGRAM, ONCE A DAY
     Route: 065
  13. LEVOMETHADONE [Suspect]
     Active Substance: LEVOMETHADONE
     Indication: Drug withdrawal syndrome
     Dosage: 57.5 MILLIGRAM, ONCE A DAY AT THE TIME OF ADMISSION
     Route: 065
  14. PALIPERIDONE [Suspect]
     Active Substance: PALIPERIDONE
     Indication: Product used for unknown indication
     Dosage: 12 MILLIGRAM, ONCE A DAY
     Route: 065

REACTIONS (21)
  - Drug abuse [Unknown]
  - Psychotic symptom [Not Recovered/Not Resolved]
  - Drug dependence [Unknown]
  - Drug withdrawal syndrome [Unknown]
  - Fatigue [Unknown]
  - Akathisia [Unknown]
  - Social problem [Unknown]
  - Weight increased [Unknown]
  - Asthenia [Unknown]
  - Skin burning sensation [Unknown]
  - Loss of libido [Unknown]
  - Constipation [Unknown]
  - Initial insomnia [Unknown]
  - Feeling hot [Unknown]
  - Depressed mood [Unknown]
  - Restlessness [Unknown]
  - Off label use [Unknown]
  - Incorrect route of product administration [Unknown]
  - Drug effective for unapproved indication [Unknown]
  - Product use in unapproved indication [Unknown]
  - Drug ineffective [Unknown]
